FAERS Safety Report 25566172 (Version 1)
Quarter: 2025Q3

REPORT INFORMATION
  Report Type: Spontaneous
  Country: GB (occurrence: GB)
  Receive Date: 20250716
  Receipt Date: 20250716
  Transmission Date: 20251021
  Serious: Yes (Death, Other)
  Sender: AMGEN
  Company Number: GB-AMGEN-GBRSP2025134233

PATIENT

DRUGS (1)
  1. CARFILZOMIB [Suspect]
     Active Substance: CARFILZOMIB
     Indication: Plasma cell myeloma refractory
     Route: 065

REACTIONS (8)
  - Plasma cell myeloma refractory [Fatal]
  - Cytokine release syndrome [Unknown]
  - Anaemia [Unknown]
  - Thrombocytopenia [Unknown]
  - Infection [Unknown]
  - Blood alkaline phosphatase abnormal [Unknown]
  - Neutropenia [Unknown]
  - Therapy partial responder [Unknown]
